FAERS Safety Report 10226669 (Version 2)
Quarter: 2014Q2

REPORT INFORMATION
  Report Type: Report from Study
  Country: CA (occurrence: CA)
  Receive Date: 20140609
  Receipt Date: 20140609
  Transmission Date: 20141212
  Serious: Yes (Death, Hospitalization)
  Sender: FDA-Public Use
  Company Number: CA-ABBVIE-14P-028-1243816-00

PATIENT
  Age: 58 Year
  Sex: Female

DRUGS (1)
  1. HUMIRA [Suspect]
     Indication: RHEUMATOID ARTHRITIS
     Route: 058
     Dates: start: 20130808, end: 201405

REACTIONS (3)
  - Hospitalisation [Not Recovered/Not Resolved]
  - Cardiac arrest [Fatal]
  - Coma [Not Recovered/Not Resolved]
